FAERS Safety Report 10096000 (Version 1)
Quarter: 2014Q2

REPORT INFORMATION
  Report Type: Spontaneous
  Country: US (occurrence: US)
  Receive Date: 20140422
  Receipt Date: 20140422
  Transmission Date: 20141212
  Serious: Yes (Hospitalization)
  Sender: FDA-Public Use
  Company Number: US-BAYER-2014-056557

PATIENT
  Age: 24 Year
  Sex: Female
  Weight: 53.97 kg

DRUGS (2)
  1. YASMIN [Suspect]
  2. FEMCON FE [Concomitant]

REACTIONS (1)
  - Pulmonary embolism [None]
